FAERS Safety Report 7361610-5 (Version None)
Quarter: 2011Q1

REPORT INFORMATION
  Report Type: 
  Country: None (occurrence: None)
  Receive Date: 20110309
  Receipt Date: 20110224
  Transmission Date: 20110831
  Serious: Yes (Other)
  Sender: FDA-Public Use
  Company Number: 2011AP000330

PATIENT
  Age: 45 Year
  Sex: Male
  Weight: 73.4827 kg

DRUGS (1)
  1. KETOTIFEN FUMARATE [Suspect]
     Indication: SEASONAL ALLERGY
     Dosage: ;QD;OPH
     Route: 047
     Dates: start: 20101122, end: 20101201

REACTIONS (1)
  - CHALAZION [None]
